FAERS Safety Report 4785472-5 (Version None)
Quarter: 2005Q4

REPORT INFORMATION
  Report Type: 
  Country: None (occurrence: None)
  Receive Date: 20051003
  Receipt Date: 20050801
  Transmission Date: 20060501
  Serious: Yes (Other)
  Sender: FDA-Public Use
  Company Number: 2005AC01149

PATIENT
  Age: 36 Year
  Sex: Male

DRUGS (3)
  1. ROSUVASTATIN [Suspect]
     Route: 048
  2. ACENOCOUMAROL [Interacting]
     Dosage: LONG TERM TREATMENT. DISCONTINUED DAY 1 (START DATE OF EVENT)
     Route: 048
  3. ACENOCOUMAROL [Interacting]
     Dosage: RE-STARTED 2 OR 3 DAYS AFTER EVENT START DATE.

REACTIONS (4)
  - DRUG INTERACTION [None]
  - HAEMATOMA [None]
  - INTERNATIONAL NORMALISED RATIO INCREASED [None]
  - REBOUND EFFECT [None]
